FAERS Safety Report 5856347-5 (Version None)
Quarter: 2008Q3

REPORT INFORMATION
  Report Type: 
  Country: None (occurrence: None)
  Receive Date: 20080825
  Receipt Date: 20080818
  Transmission Date: 20090109
  Serious: Yes (Other)
  Sender: FDA-Public Use
  Company Number: IT-TEVA-175267ISR

PATIENT
  Age: 23 Year
  Sex: Male

DRUGS (2)
  1. MESALAMINE [Suspect]
     Indication: COLITIS ULCERATIVE
     Route: 054
  2. MESALAMINE [Suspect]
     Route: 048

REACTIONS (1)
  - PLEURISY [None]
